FAERS Safety Report 9576970 (Version 1)
Quarter: 2013Q4

REPORT INFORMATION
  Report Type: Spontaneous
  Country: US (occurrence: US)
  Receive Date: 20131001
  Receipt Date: 20131001
  Transmission Date: 20140711
  Serious: No
  Sender: FDA-Public Use
  Company Number: US-AMGEN-USASP2013005498

PATIENT
  Age: 56 Year
  Sex: Female
  Weight: 87 kg

DRUGS (8)
  1. ENBREL [Suspect]
     Indication: RHEUMATOID ARTHRITIS
     Dosage: UNK
     Route: 058
     Dates: start: 201210, end: 20130111
  2. BENICAR [Concomitant]
     Dosage: UNK
  3. RHINOCORT                          /00212602/ [Concomitant]
     Dosage: UNK
  4. SINGULAR [Concomitant]
     Dosage: UNK
  5. SYMBICORT [Concomitant]
     Dosage: UNK
  6. TRAZODONE [Concomitant]
     Dosage: UNK
  7. ASA [Concomitant]
     Dosage: 81 MG, UNK
  8. MOBIC [Concomitant]
     Dosage: UNK

REACTIONS (2)
  - Drug ineffective [Not Recovered/Not Resolved]
  - Injection site reaction [Not Recovered/Not Resolved]
